FAERS Safety Report 26191458 (Version 1)
Quarter: 2025Q4

REPORT INFORMATION
  Report Type: Spontaneous
  Country: JP (occurrence: JP)
  Receive Date: 20251223
  Receipt Date: 20251223
  Transmission Date: 20260118
  Serious: Yes (Other)
  Sender: RANBAXY
  Company Number: JP-SUN PHARMACEUTICAL INDUSTRIES INC-2025R1-542433

PATIENT
  Age: 81 Year
  Sex: Female

DRUGS (2)
  1. SYMMETREL [Suspect]
     Active Substance: AMANTADINE HYDROCHLORIDE
     Indication: Cerebrovascular disorder
     Dosage: 200 MILLIGRAM
     Route: 065
  2. DONEPEZIL HYDROCHLORIDE [Suspect]
     Active Substance: DONEPEZIL HYDROCHLORIDE
     Indication: Product used for unknown indication
     Dosage: 5 MILLIGRAM
     Route: 065

REACTIONS (6)
  - Toxicity to various agents [Unknown]
  - Dehydration [Unknown]
  - Hallucination [Unknown]
  - Cognitive disorder [Unknown]
  - Myoclonus [Unknown]
  - COVID-19 [Unknown]
